FAERS Safety Report 12966242 (Version 1)
Quarter: 2016Q4

REPORT INFORMATION
  Report Type: Spontaneous
  Country: US (occurrence: US)
  Receive Date: 20161118
  Receipt Date: 20161118
  Transmission Date: 20170207
  Serious: No
  Sender: FDA-Public Use
  Company Number: None

PATIENT
  Age: 75 Year
  Sex: Male

DRUGS (5)
  1. SOVALDI [Suspect]
     Active Substance: SOFOSBUVIR
     Indication: HEPATITIS C
  2. SOVALDI [Suspect]
     Active Substance: SOFOSBUVIR
     Indication: HEPATIC CIRRHOSIS
  3. SOVALDI [Suspect]
     Active Substance: SOFOSBUVIR
     Indication: CHRONIC KIDNEY DISEASE
  4. SOVALDI [Suspect]
     Active Substance: SOFOSBUVIR
     Indication: VARICES OESOPHAGEAL
  5. SOVALDI [Suspect]
     Active Substance: SOFOSBUVIR
     Indication: THROMBOCYTOPENIA

REACTIONS (2)
  - Dizziness [None]
  - Dry skin [None]

NARRATIVE: CASE EVENT DATE: 20161118
